FAERS Safety Report 21779960 (Version 1)
Quarter: 2022Q4

REPORT INFORMATION
  Report Type: Spontaneous
  Country: CO (occurrence: CO)
  Receive Date: 20221226
  Receipt Date: 20221226
  Transmission Date: 20230112
  Serious: Yes (Hospitalization)
  Sender: FDA-Public Use
  Company Number: CO-drreddys-LIT/COL/22/0158966

PATIENT
  Age: 64 Year
  Sex: Female

DRUGS (3)
  1. FULVESTRANT [Suspect]
     Active Substance: FULVESTRANT
     Indication: Metastases to bone
  2. PALBOCICLIB [Suspect]
     Active Substance: PALBOCICLIB
     Indication: Metastases to bone
     Dosage: RADIOTHERAPY (DOSES/DAY OF 700?2100 CGY) AND CHEMOTHERAPY
  3. ZOLEDRONIC ACID [Suspect]
     Active Substance: ZOLEDRONIC ACID
     Indication: Metastases to bone
     Dosage: RADIOTHERAPY (DOSES/DAY OF 700?2100 CGY) AND CHEMOTHERAPY

REACTIONS (6)
  - Erosive oesophagitis [Recovering/Resolving]
  - Radiation oesophagitis [Recovering/Resolving]
  - Hypotension [Recovering/Resolving]
  - Gastric disorder [Recovering/Resolving]
  - Tachycardia [Recovering/Resolving]
  - Product use in unapproved indication [Unknown]
